FAERS Safety Report 8894709 (Version 1)
Quarter: 2012Q4

REPORT INFORMATION
  Report Type: 
  Country: DE (occurrence: DE)
  Receive Date: 20121108
  Receipt Date: 20121108
  Transmission Date: 20130627
  Serious: Yes (Hospitalization, Other)
  Sender: FDA-Public Use
  Company Number: DE-AMGEN-DEUSP2012070552

PATIENT
  Age: 64 Year
  Sex: Female

DRUGS (10)
  1. ENBREL [Suspect]
     Indication: RHEUMATOID ARTHRITIS
     Dosage: 50 mg, weekly
     Dates: start: 20110128, end: 20120408
  2. METHOTREXATE [Concomitant]
     Dosage: UNK
  3. MORPHINE [Concomitant]
     Dosage: UNK
  4. ALENDRONIC ACID [Concomitant]
     Dosage: UNK
  5. PREDNISOLONE [Concomitant]
     Dosage: UNK
  6. GABAPENTIN [Concomitant]
     Dosage: UNK
  7. VIGANTOLETTEN [Concomitant]
     Dosage: UNK
  8. OMEPRAZOL                          /00661201/ [Concomitant]
     Dosage: UNK UNK, UNK
  9. OPIPRAMOL [Concomitant]
     Dosage: UNK UNK, UNK
  10. AMITRIPTYLINE [Concomitant]
     Dosage: UNK UNK, UNK

REACTIONS (2)
  - Cerebrovascular accident [Recovered/Resolved]
  - Carotid artery stenosis [Unknown]
